FAERS Safety Report 4367743-X (Version None)
Quarter: 2004Q2

REPORT INFORMATION
  Report Type: 
  Country: None (occurrence: None)
  Receive Date: 20040601
  Receipt Date: 20040520
  Transmission Date: 20050107
  Serious: Yes (Other)
  Sender: FDA-Public Use
  Company Number: US-BRISTOL-MYERS SQUIBB COMPANY-12592119

PATIENT
  Sex: Female

DRUGS (3)
  1. ESTRADIOL [Suspect]
  2. MEDROXYPROGESTERONE [Suspect]
  3. CYCRIN [Suspect]

REACTIONS (1)
  - BREAST CANCER [None]
